FAERS Safety Report 5221123-3 (Version None)
Quarter: 2007Q1

REPORT INFORMATION
  Report Type: 
  Country: None (occurrence: None)
  Receive Date: 20070124
  Receipt Date: 20070111
  Transmission Date: 20070707
  Serious: Yes (Other)
  Sender: FDA-Public Use
  Company Number: 07-0002PE

PATIENT
  Sex: Female

DRUGS (1)
  1. PROPECIA [Suspect]
     Indication: SUPPLEMENTATION THERAPY
     Dosage: PO
     Route: 048

REACTIONS (3)
  - ANXIETY [None]
  - CHEST PAIN [None]
  - HEART RATE INCREASED [None]
